FAERS Safety Report 24449552 (Version 1)
Quarter: 2024Q4

REPORT INFORMATION
  Report Type: Spontaneous
  Country: DE (occurrence: DE)
  Receive Date: 20241017
  Receipt Date: 20241017
  Transmission Date: 20250115
  Serious: Yes (Other)
  Sender: MIRUM PHARMACEUTICALS
  Company Number: DE-MIRUM PHARMACEUTICALS, INC.-DE-MIR-24-00915

PATIENT

DRUGS (1)
  1. LIVMARLI [Suspect]
     Active Substance: MARALIXIBAT CHLORIDE
     Indication: Product used for unknown indication
     Dosage: UNK
     Route: 065
     Dates: start: 202302, end: 2024

REACTIONS (1)
  - Liver transplant [Unknown]
